FAERS Safety Report 6941065-2 (Version None)
Quarter: 2010Q3

REPORT INFORMATION
  Report Type: 
  Country: None (occurrence: None)
  Receive Date: 20100825
  Receipt Date: 20100824
  Transmission Date: 20110219
  Serious: Yes (Hospitalization, Other)
  Sender: FDA-Public Use
  Company Number: US-BRISTOL-MYERS SQUIBB COMPANY-15241599

PATIENT
  Age: 55 Year
  Sex: Female

DRUGS (8)
  1. ONGLYZA [Suspect]
     Indication: TYPE 2 DIABETES MELLITUS
     Route: 048
     Dates: start: 20100524
  2. TENORMIN [Concomitant]
  3. POTASSIUM [Concomitant]
  4. ZETIA [Concomitant]
  5. HYDROCHLOROTHIAZIDE [Concomitant]
  6. ADVIL LIQUI-GELS [Concomitant]
  7. NIACIN [Concomitant]
  8. ASPIRIN [Concomitant]

REACTIONS (3)
  - ACUTE LYMPHOCYTIC LEUKAEMIA [None]
  - CHEST PAIN [None]
  - FATIGUE [None]
